FAERS Safety Report 10079632 (Version 1)
Quarter: 2014Q2

REPORT INFORMATION
  Report Type: Spontaneous
  Country: US (occurrence: None)
  Receive Date: 20140414
  Receipt Date: 20140414
  Transmission Date: 20141212
  Serious: Yes (Disabling)
  Sender: FDA-Public Use
  Company Number: None

PATIENT
  Age: 28 Year
  Sex: Female
  Weight: 53.07 kg

DRUGS (1)
  1. MIRENA IUD [Suspect]

REACTIONS (5)
  - Vertigo [None]
  - Alopecia [None]
  - Skin lesion [None]
  - Pain [None]
  - Pain of skin [None]
